FAERS Safety Report 10989413 (Version 8)
Quarter: 2015Q3

REPORT INFORMATION
  Report Type: Spontaneous
  Country: US (occurrence: US)
  Receive Date: 20150406
  Receipt Date: 20150923
  Transmission Date: 20151125
  Serious: Yes (Hospitalization, Other)
  Sender: FDA-Public Use
  Company Number: US-PFIZER INC-2015117597

PATIENT
  Age: 35 Year
  Sex: Male
  Weight: 145 kg

DRUGS (15)
  1. SUTENT [Suspect]
     Active Substance: SUNITINIB MALATE
     Dosage: 50 MG, UNK
     Dates: start: 20120429, end: 20130131
  2. MAGNESIUM OXIDE. [Concomitant]
     Active Substance: MAGNESIUM OXIDE
     Dosage: UNK
  3. LOMOTIL [Concomitant]
     Active Substance: ATROPINE SULFATE\DIPHENOXYLATE HYDROCHLORIDE
     Dosage: UNK
  4. SUTENT [Suspect]
     Active Substance: SUNITINIB MALATE
     Dosage: 50 MG, CYCLIC (DAILY 3 WEEKS ON 1 WEEK OFF)
     Dates: start: 20150406, end: 20150909
  5. PREDNISONE. [Concomitant]
     Active Substance: PREDNISONE
     Dosage: 200 MG, DAILY
  6. EMEND [Concomitant]
     Active Substance: APREPITANT
     Dosage: 1 DF, 1X/DAY
     Route: 048
     Dates: start: 20110412
  7. TYLENOL [Concomitant]
     Active Substance: ACETAMINOPHEN
     Dosage: 500 MG, UNK
     Route: 048
  8. LASIX [Concomitant]
     Active Substance: FUROSEMIDE
     Dosage: UNK
  9. PREDNISONE. [Concomitant]
     Active Substance: PREDNISONE
     Dosage: 5 MG, 2X/DAY
     Route: 048
     Dates: start: 20130709
  10. LEVOTHYROXINE. [Concomitant]
     Active Substance: LEVOTHYROXINE
     Dosage: UNK
  11. IBUPROFEN. [Concomitant]
     Active Substance: IBUPROFEN
     Dosage: 200 MG, UNK
     Route: 048
  12. SUTENT [Suspect]
     Active Substance: SUNITINIB MALATE
     Indication: THYMOMA MALIGNANT
     Dosage: 50 MG, CYCLIC (3 WEEKS ON, 1 WEEK OFF)
     Route: 048
     Dates: start: 20111113
  13. DILAUDID [Concomitant]
     Active Substance: HYDROMORPHONE HYDROCHLORIDE
     Indication: PAIN
     Dosage: 2 MG, DAILY
     Route: 048
     Dates: start: 20121107
  14. DILAUDID [Concomitant]
     Active Substance: HYDROMORPHONE HYDROCHLORIDE
     Dosage: 2 MG, UNK
     Route: 048
     Dates: start: 20130327
  15. PREDNISONE. [Concomitant]
     Active Substance: PREDNISONE
     Dosage: 5 MG, 2X/DAY
     Route: 048
     Dates: start: 20130114

REACTIONS (24)
  - Dizziness [Unknown]
  - Product use issue [Unknown]
  - Pain [Unknown]
  - Ejection fraction decreased [Unknown]
  - Skin discolouration [Unknown]
  - Candida infection [Unknown]
  - Dyspepsia [Unknown]
  - Muscle spasms [Unknown]
  - Lung infiltration [Unknown]
  - Haemoglobin decreased [Unknown]
  - Hot flush [Unknown]
  - Lung disorder [Unknown]
  - Aplasia pure red cell [Unknown]
  - Thymoma malignant [Unknown]
  - Diarrhoea [Unknown]
  - Fatigue [Unknown]
  - Disease progression [Unknown]
  - Palmar-plantar erythrodysaesthesia syndrome [Unknown]
  - Night sweats [Unknown]
  - Hypothyroidism [Unknown]
  - Lip ulceration [Unknown]
  - Rash [Unknown]
  - Gastrooesophageal reflux disease [Unknown]
  - Weight increased [Unknown]

NARRATIVE: CASE EVENT DATE: 20131219
